FAERS Safety Report 12754163 (Version 1)
Quarter: 2016Q3

REPORT INFORMATION
  Report Type: Spontaneous
  Country: US (occurrence: US)
  Receive Date: 20160915
  Receipt Date: 20160915
  Transmission Date: 20161109
  Serious: No
  Sender: FDA-Public Use
  Company Number: US-ALLERGAN-1664777US

PATIENT
  Sex: Female

DRUGS (3)
  1. VIBERZI [Suspect]
     Active Substance: ELUXADOLINE
     Dosage: 100 MG, BID
  2. VIBERZI [Suspect]
     Active Substance: ELUXADOLINE
     Dosage: 100 MG, QD
  3. VIBERZI [Suspect]
     Active Substance: ELUXADOLINE
     Indication: COLITIS
     Dosage: 100 MG, EVERY OTHER DAY

REACTIONS (2)
  - Off label use [Unknown]
  - Drug ineffective for unapproved indication [Unknown]
